FAERS Safety Report 8325499-X (Version None)
Quarter: 2012Q2

REPORT INFORMATION
  Report Type: 
  Country: None (occurrence: None)
  Receive Date: 20120501
  Receipt Date: 20120420
  Transmission Date: 20120825
  Serious: Yes (Hospitalization, Other)
  Sender: FDA-Public Use
  Company Number: CH-JNJFOC-20120409040

PATIENT
  Age: 79 Year
  Sex: Male

DRUGS (11)
  1. MOTILIUM [Suspect]
     Indication: VOMITING
     Route: 048
     Dates: start: 20120105, end: 20120206
  2. ASPIRIN [Concomitant]
     Dosage: LONG TERM
     Route: 048
  3. NEXIUM [Concomitant]
     Route: 048
     Dates: start: 20120310
  4. VITARUBIN [Concomitant]
     Route: 058
     Dates: start: 20120202
  5. NEXIUM [Concomitant]
     Route: 048
     Dates: start: 20120127
  6. HALDOL [Suspect]
     Indication: AGGRESSION
     Route: 048
     Dates: start: 20110201, end: 20120206
  7. ESCITALOPRAM [Concomitant]
     Route: 048
  8. NEURONTIN [Concomitant]
     Route: 048
  9. LORAZEPAM [Concomitant]
     Route: 048
     Dates: start: 20120123
  10. ARICEPT [Suspect]
     Indication: PRODUCT USED FOR UNKNOWN INDICATION
     Route: 048
     Dates: end: 20120105
  11. ARICEPT [Suspect]
     Route: 048
     Dates: start: 20120105, end: 20120319

REACTIONS (5)
  - GASTROENTERITIS [None]
  - DYSKINESIA [None]
  - EXTRAPYRAMIDAL DISORDER [None]
  - PARKINSONISM [None]
  - FALL [None]
